FAERS Safety Report 4342464-8 (Version None)
Quarter: 2004Q2

REPORT INFORMATION
  Report Type: 
  Country: None (occurrence: None)
  Receive Date: 20040420
  Receipt Date: 20040409
  Transmission Date: 20050107
  Serious: Yes (Life-Threatening, Hospitalization)
  Sender: FDA-Public Use
  Company Number: 03-00532(3)

PATIENT
  Age: 6 Year
  Sex: Male
  Weight: 18.5068 kg

DRUGS (5)
  1. IBUPROFEN [Suspect]
     Indication: PYREXIA
     Dosage: 100 MG, 1+1/2 TEASPOONFULS EVERY 6 HOURS, ORAL
     Route: 048
     Dates: start: 20030305, end: 20030306
  2. MOTRIN [Concomitant]
  3. TOBREX [Concomitant]
  4. ZITHROMAX [Concomitant]
  5. PANHIST DM SYRUP [Concomitant]

REACTIONS (12)
  - ASTHMA [None]
  - BLINDNESS UNILATERAL [None]
  - BLOOD PRESSURE INCREASED [None]
  - BRONCHITIS [None]
  - COMA [None]
  - CONSTIPATION [None]
  - DRUG HYPERSENSITIVITY [None]
  - LUNG DISORDER [None]
  - LUNG TRANSPLANT [None]
  - STEVENS-JOHNSON SYNDROME [None]
  - TACHYCARDIA [None]
  - UPPER RESPIRATORY TRACT INFECTION [None]
